FAERS Safety Report 14074249 (Version 1)
Quarter: 2017Q4

REPORT INFORMATION
  Report Type: Not Available
  Country: TR (occurrence: TR)
  Receive Date: 20171010
  Receipt Date: 20171010
  Transmission Date: 20180321
  Serious: Yes (Hospitalization)
  Sender: FDA-Public Use
  Company Number: TR-ANIPHARMA-2017-TR-000034

PATIENT
  Age: 15 Year
  Sex: Female

DRUGS (2)
  1. RISPERIDONE (NON-SPECIFIC) [Concomitant]
     Active Substance: RISPERIDONE
     Dosage: 4 MG DAILY
  2. VALPROIC ACID (NON-SPECIFIC) [Suspect]
     Active Substance: VALPROIC ACID
     Dosage: 750 MG DAILY

REACTIONS (2)
  - Eosinophilia [Unknown]
  - Pleural effusion [Recovered/Resolved]
